FAERS Safety Report 11230283 (Version 1)
Quarter: 2015Q2

REPORT INFORMATION
  Report Type: Spontaneous
  Country: BR (occurrence: None)
  Receive Date: 20150629
  Receipt Date: 20150629
  Transmission Date: 20150821
  Serious: Yes (Other)
  Sender: FDA-Public Use
  Company Number: BR-2015VAL000391

PATIENT
  Age: 61 Year
  Sex: Female
  Weight: 48 kg

DRUGS (2)
  1. ROCALTROL [Suspect]
     Active Substance: CALCITRIOL
     Indication: MINERAL SUPPLEMENTATION
     Dosage: 30 CAPSULES IN THE MORNING
     Route: 048
  2. SIGMATRIOL [Suspect]
     Active Substance: CALCITRIOL
     Indication: MINERAL SUPPLEMENTATION

REACTIONS (2)
  - Bone pain [None]
  - Rheumatoid arthritis [None]
